FAERS Safety Report 8879694 (Version 2)
Quarter: 2013Q2

REPORT INFORMATION
  Report Type: Spontaneous
  Country: SE (occurrence: SE)
  Receive Date: 20121101
  Receipt Date: 20130620
  Transmission Date: 20140414
  Serious: Yes (Hospitalization)
  Sender: FDA-Public Use
  Company Number: SE-AMGEN-SWESP2012068676

PATIENT
  Age: 58 Year
  Sex: Female

DRUGS (2)
  1. ENBREL [Suspect]
     Indication: RHEUMATOID ARTHRITIS
     Dosage: UNK
     Dates: start: 201003, end: 20100510
  2. METOJECT [Concomitant]
     Dosage: UNK

REACTIONS (3)
  - Cerebral infarction [Recovered/Resolved with Sequelae]
  - Pruritus [Recovered/Resolved]
  - Injection site rash [Recovered/Resolved]
